FAERS Safety Report 6498505-5 (Version None)
Quarter: 2009Q4

REPORT INFORMATION
  Report Type: 
  Country: None (occurrence: None)
  Receive Date: 20091127
  Receipt Date: 20090923
  Transmission Date: 20100525
  Serious: Yes (Other)
  Sender: FDA-Public Use
  Company Number: 292027

PATIENT
  Age: 75 Year
  Sex: Male
  Weight: 122.4 kg

DRUGS (2)
  1. NOVOLOG [Suspect]
     Indication: TYPE 1 DIABETES MELLITUS
     Dosage: SLIDING SCALE 4 TIMES A DAY, SUBCUTANEOUS
     Route: 058
     Dates: start: 20090101
  2. LANTUS OPTIPEN (INSULIN GLARGINE) [Concomitant]

REACTIONS (1)
  - BLOOD GLUCOSE INCREASED [None]
